FAERS Safety Report 5840521-8 (Version None)
Quarter: 2008Q3

REPORT INFORMATION
  Report Type: 
  Country: None (occurrence: None)
  Receive Date: 20080807
  Receipt Date: 20080807
  Transmission Date: 20090109
  Serious: Yes (Hospitalization, Other)
  Sender: FDA-Public Use
  Company Number: None

PATIENT
  Age: 31 Year
  Sex: Female
  Weight: 48.0813 kg

DRUGS (1)
  1. LAMICTAL [Suspect]
     Indication: EPILEPSY
     Dosage: 25MG 2X'S DAILY PO
     Route: 048
     Dates: start: 20071025, end: 20071116

REACTIONS (18)
  - ALOPECIA [None]
  - CARDIAC DISORDER [None]
  - DRY EYE [None]
  - EYE PAIN [None]
  - GENITAL INFECTION [None]
  - INFLUENZA [None]
  - LYMPHADENOPATHY [None]
  - MUSCLE FATIGUE [None]
  - NERVE INJURY [None]
  - OEDEMA MOUTH [None]
  - ONYCHOMADESIS [None]
  - PARAESTHESIA [None]
  - PHOTOPHOBIA [None]
  - RESPIRATORY DISORDER [None]
  - STEVENS-JOHNSON SYNDROME [None]
  - STOMATITIS [None]
  - TONGUE DISCOLOURATION [None]
  - TOXIC EPIDERMAL NECROLYSIS [None]
